FAERS Safety Report 11255766 (Version 1)
Quarter: 2015Q3

REPORT INFORMATION
  Report Type: Spontaneous
  Country: US (occurrence: US)
  Receive Date: 20150709
  Receipt Date: 20150709
  Transmission Date: 20151125
  Serious: Yes (Other)
  Sender: FDA-Public Use
  Company Number: US-CIPLA LTD.-2015US05406

PATIENT

DRUGS (3)
  1. LEUCOVORIN. [Suspect]
     Active Substance: LEUCOVORIN
     Indication: SMALL INTESTINE ADENOCARCINOMA
     Dosage: 200 MG/M2, FOR EVERY 2 TO 3 WEEKS FOR EIGHT COURSES
     Route: 065
  2. FLUOROURACIL. [Suspect]
     Active Substance: FLUOROURACIL
     Indication: SMALL INTESTINE ADENOCARCINOMA
     Dosage: 2400 MG/M2, 48 HOUR, FOR EVERY 2 TO 3 WEEKS FOR EIGHT COURSES
  3. IRINOTECAN [Suspect]
     Active Substance: IRINOTECAN
     Indication: SMALL INTESTINE ADENOCARCINOMA
     Dosage: 180 MG/M2, EVERY 2 TO 3 WEEKS FOR EIGHT COURSES
     Route: 065

REACTIONS (9)
  - Sepsis [Recovered/Resolved]
  - Intestinal obstruction [Recovered/Resolved]
  - Adenocarcinoma [Recovered/Resolved]
  - Abdominal infection [Recovered/Resolved]
  - Acute leukaemia [Recovered/Resolved]
  - Fatigue [Recovered/Resolved]
  - Wound dehiscence [Recovered/Resolved]
  - Haemorrhage [Recovered/Resolved]
  - Anaemia [Recovered/Resolved]
